FAERS Safety Report 22651250 (Version 1)
Quarter: 2023Q2

REPORT INFORMATION
  Report Type: Spontaneous
  Country: US (occurrence: None)
  Receive Date: 20230627
  Receipt Date: 20230627
  Transmission Date: 20230722
  Serious: Yes (Other)
  Sender: FDA-Public Use
  Company Number: None

PATIENT
  Sex: Female

DRUGS (18)
  1. PRALUENT [Suspect]
     Active Substance: ALIROCUMAB
     Indication: Product used for unknown indication
     Dosage: 75 MG/ML SUBCUTANEOUS ??INJECT 75 MG UNDER THE SKIN (SUBCUTANEOUS INJECTION) ONCE EVERY 2 WEEKS
     Route: 058
     Dates: start: 20210107
  2. CLOBETASOL [Concomitant]
     Active Substance: CLOBETASOL
  3. CLOTRIM/BETA [Concomitant]
  4. ESCITALOPRAM [Concomitant]
     Active Substance: ESCITALOPRAM OXALATE
  5. ESTRADIOL [Concomitant]
     Active Substance: ESTRADIOL
  6. FARXIGA [Concomitant]
     Active Substance: DAPAGLIFLOZIN PROPANEDIOL
  7. FLUCONAZOLE [Concomitant]
     Active Substance: FLUCONAZOLE
  8. HUMALOG [Concomitant]
     Active Substance: INSULIN LISPRO
  9. MECLIZINE [Concomitant]
     Active Substance: MECLIZINE HYDROCHLORIDE
  10. MITIGARE [Concomitant]
     Active Substance: COLCHICINE
  11. MULTIPLE VIT [Concomitant]
  12. OZEMPIC [Concomitant]
     Active Substance: SEMAGLUTIDE
  13. PRASUGREL [Concomitant]
     Active Substance: PRASUGREL
  14. ROSUVASTATIN [Concomitant]
     Active Substance: ROSUVASTATIN
  15. SYNTHROID [Concomitant]
     Active Substance: LEVOTHYROXINE SODIUM
  16. VALSARTAN [Concomitant]
     Active Substance: VALSARTAN
  17. VASCEPA [Concomitant]
     Active Substance: ICOSAPENT ETHYL
  18. XARELTO [Concomitant]
     Active Substance: RIVAROXABAN

REACTIONS (1)
  - Bladder cancer [None]
